FAERS Safety Report 9939841 (Version 1)
Quarter: 2014Q1

REPORT INFORMATION
  Report Type: Report from Study
  Country: US (occurrence: US)
  Receive Date: 20140303
  Receipt Date: 20140303
  Transmission Date: 20141002
  Serious: No
  Sender: FDA-Public Use
  Company Number: US-ABBVIE-13P-163-1036306-00

PATIENT
  Age: 38 Year
  Sex: Female

DRUGS (12)
  1. HUMIRA [Suspect]
     Indication: CROHN^S DISEASE
     Dates: start: 20120828
  2. PERCOCET [Concomitant]
     Indication: PRODUCT USED FOR UNKNOWN INDICATION
     Dosage: 5/325 MG
  3. IMURAN [Concomitant]
     Indication: PRODUCT USED FOR UNKNOWN INDICATION
  4. TOPRIMATE [Concomitant]
     Indication: MIGRAINE
  5. WELLBUTRIN [Concomitant]
     Indication: DEPRESSION
  6. WELLBUTRIN [Concomitant]
     Indication: PANIC ATTACK
  7. ESTRADIOL [Concomitant]
     Indication: HORMONE REPLACEMENT THERAPY
  8. LYRICA [Concomitant]
     Indication: FIBROMYALGIA
  9. LOMOTIL [Concomitant]
     Indication: DIARRHOEA
     Dosage: UNKNOWN DOSE AS REQUIRED
  10. EFFEXOR [Concomitant]
     Indication: PANIC ATTACK
  11. VALTREX [Concomitant]
     Indication: ORAL HERPES
  12. CLONAZEPAM [Concomitant]
     Indication: ANXIETY
     Dosage: UP TO 4 TIMES DAILY

REACTIONS (1)
  - Injection site bruising [Recovering/Resolving]
